FAERS Safety Report 4924869-7 (Version None)
Quarter: 2006Q1

REPORT INFORMATION
  Report Type: 
  Country: None (occurrence: None)
  Receive Date: 20060222
  Receipt Date: 20060207
  Transmission Date: 20060701
  Serious: Yes (Other)
  Sender: FDA-Public Use
  Company Number: 13402

PATIENT
  Age: 61 Year
  Sex: Female

DRUGS (1)
  1. PACLITAXEL [Suspect]
     Indication: OVARIAN CANCER
     Dosage: 175 MG/M2 DAILY IV
     Route: 042
     Dates: start: 20060118

REACTIONS (3)
  - ABDOMINAL PAIN UPPER [None]
  - ERYTHEMA [None]
  - URTICARIA [None]
